FAERS Safety Report 19911925 (Version 1)
Quarter: 2021Q4

REPORT INFORMATION
  Report Type: Spontaneous
  Country: US (occurrence: US)
  Receive Date: 20211002
  Receipt Date: 20211002
  Transmission Date: 20220303
  Serious: Yes (Hospitalization)
  Sender: FDA-Public Use
  Company Number: None

PATIENT
  Age: 74 Year
  Sex: Female
  Weight: 56.6 kg

DRUGS (2)
  1. CARBOPLATIN [Suspect]
     Active Substance: CARBOPLATIN
     Dates: end: 20210813
  2. TAXOL [Suspect]
     Active Substance: PACLITAXEL
     Dates: end: 20210813

REACTIONS (8)
  - Muscular weakness [None]
  - Diarrhoea [None]
  - Fall [None]
  - Dehydration [None]
  - White blood cell count decreased [None]
  - Blood creatine decreased [None]
  - Gait disturbance [None]
  - Mobility decreased [None]

NARRATIVE: CASE EVENT DATE: 20210820
